FAERS Safety Report 6415537-3 (Version None)
Quarter: 2009Q4

REPORT INFORMATION
  Report Type: 
  Country: None (occurrence: None)
  Receive Date: 20091022
  Receipt Date: 20091012
  Transmission Date: 20100525
  Serious: Yes (Death)
  Sender: FDA-Public Use
  Company Number: ADE09072-L

PATIENT

DRUGS (2)
  1. CYCLOSPORINE [Suspect]
     Indication: IMMUNOSUPPRESSION
     Dosage: 12 MG/KG/DAY, IV
     Route: 042
  2. EVEROLIMUS [Concomitant]

REACTIONS (3)
  - CARDIAC TAMPONADE [None]
  - MYOCARDIAL RUPTURE [None]
  - PROCEDURAL COMPLICATION [None]
